FAERS Safety Report 6234631-3 (Version None)
Quarter: 2009Q2

REPORT INFORMATION
  Report Type: 
  Country: None (occurrence: None)
  Receive Date: 20090616
  Receipt Date: 20090616
  Transmission Date: 20091009
  Serious: Yes (Life-Threatening, Hospitalization, Other)
  Sender: FDA-Public Use
  Company Number: None

PATIENT
  Age: 57 Year
  Sex: Male
  Weight: 90.7194 kg

DRUGS (1)
  1. CLONIDINE [Suspect]
     Indication: MUSCLE SPASMS
     Dosage: .05MG -HALF A TABLET- TWICE DAILY PO
     Route: 048
     Dates: start: 19890101, end: 20090604

REACTIONS (3)
  - FATIGUE [None]
  - PRODUCT LABEL ISSUE [None]
  - PRODUCT MEASURED POTENCY ISSUE [None]
